FAERS Safety Report 18619912 (Version 1)
Quarter: 2020Q4

REPORT INFORMATION
  Report Type: Spontaneous
  Country: US (occurrence: US)
  Receive Date: 20201215
  Receipt Date: 20201215
  Transmission Date: 20210114
  Serious: No
  Sender: FDA-Public Use
  Company Number: US-BAYER-2020-276916

PATIENT
  Age: 77 Year
  Sex: Male

DRUGS (4)
  1. VITAMIN B [VITAMIN B NOS] [Concomitant]
  2. MIRALAX [Suspect]
     Active Substance: POLYETHYLENE GLYCOL 3350
     Indication: GASTROINTESTINAL DISORDER
     Dosage: A LITTLE BELOW THE WHITE LINE ON THE CAP BID
     Route: 048
     Dates: start: 2020, end: 202012
  3. VITAMIN D [VITAMIN D NOS] [Concomitant]
     Active Substance: VITAMIN D NOS
  4. RETINOL [Concomitant]
     Active Substance: RETINOL

REACTIONS (2)
  - Incorrect product administration duration [Unknown]
  - Fatigue [Recovered/Resolved]

NARRATIVE: CASE EVENT DATE: 2020
